FAERS Safety Report 5545765-0 (Version None)
Quarter: 2007Q4

REPORT INFORMATION
  Report Type: 
  Country: None (occurrence: None)
  Receive Date: 20071211
  Receipt Date: 20071204
  Transmission Date: 20080405
  Serious: Yes (Life-Threatening)
  Sender: FDA-Public Use
  Company Number: JP-ELI_LILLY_AND_COMPANY-JP200710006065

PATIENT
  Sex: Male
  Weight: 49.2 kg

DRUGS (19)
  1. PEMETREXED [Suspect]
     Indication: PLEURAL MESOTHELIOMA MALIGNANT
     Dosage: 742.5 MG, DAILY (1/D)
     Route: 042
     Dates: start: 20070309
  2. CISPLATIN [Suspect]
     Indication: PLEURAL MESOTHELIOMA MALIGNANT
     Dosage: 111 MG, OTHER
     Route: 042
     Dates: start: 20070309
  3. PANVITAN [Concomitant]
     Dosage: 0.5 MG, DAILY (1/D)
     Route: 048
     Dates: start: 20070302, end: 20070622
  4. PANVITAN [Concomitant]
     Dosage: 0.5 MG, DAILY (1/D)
     Route: 048
     Dates: start: 20070816
  5. HYDROXOCOBALAMIN ACETATE [Concomitant]
     Dosage: 1 MG, DAILY (1/D)
     Route: 030
     Dates: start: 20070302, end: 20070302
  6. HYDROXOCOBALAMIN ACETATE [Concomitant]
     Dosage: 1 MG, DAILY (1/D)
     Route: 030
     Dates: start: 20070427, end: 20070427
  7. HYDROXOCOBALAMIN ACETATE [Concomitant]
     Dosage: 1 MG, DAILY (1/D)
     Route: 030
     Dates: start: 20070816, end: 20070816
  8. HYDROXOCOBALAMIN ACETATE [Concomitant]
     Dosage: 1 MG, DAILY (1/D)
     Route: 030
     Dates: start: 20071009, end: 20071009
  9. KYTRIL [Concomitant]
     Indication: PROPHYLAXIS
     Dosage: 3 MG, DAILY (1/D)
     Route: 042
     Dates: start: 20070309
  10. LOXONIN [Concomitant]
     Indication: CANCER PAIN
     Dosage: 180 MG, DAILY (1/D)
     Route: 048
     Dates: end: 20070323
  11. LOXONIN [Concomitant]
     Dosage: 60 MG, AS NEEDED
     Route: 048
     Dates: start: 20070426, end: 20070608
  12. LOXONIN [Concomitant]
     Dosage: 180 MG, DAILY (1/D)
     Route: 048
     Dates: start: 20070622, end: 20070720
  13. MASKIN [Concomitant]
     Indication: CANCER PAIN
     Dosage: 400 MG, DAILY (1/D)
     Route: 048
     Dates: start: 20070330, end: 20070409
  14. OXYCONTIN [Concomitant]
     Indication: CANCER PAIN
     Dosage: 10 MG, DAILY (1/D)
     Route: 048
     Dates: start: 20070410, end: 20070622
  15. OXYCONTIN [Concomitant]
     Dosage: 10 MG, DAILY (1/D)
     Route: 048
     Dates: start: 20070720
  16. OPSO [Concomitant]
     Indication: CANCER PAIN
     Dosage: 5 MG, AS NEEDED
     Route: 048
     Dates: start: 20070608
  17. DECADRON [Concomitant]
     Indication: ANAPHYLAXIS PROPHYLAXIS
     Dosage: 24 MG, DAILY (1/D)
     Route: 042
     Dates: start: 20070914, end: 20070914
  18. DECADRON [Concomitant]
     Dosage: 8 MG, UNK
     Route: 042
  19. ALLELOCK [Concomitant]
     Indication: ANAPHYLAXIS PROPHYLAXIS
     Route: 048

REACTIONS (1)
  - ANAPHYLACTIC REACTION [None]
